FAERS Safety Report 9974042 (Version 1)
Quarter: 2014Q1

REPORT INFORMATION
  Report Type: Spontaneous
  Country: US (occurrence: US)
  Receive Date: 20140306
  Receipt Date: 20140306
  Transmission Date: 20141002
  Serious: Yes (Other)
  Sender: FDA-Public Use
  Company Number: US-PFIZER INC-2014063610

PATIENT
  Sex: Male

DRUGS (3)
  1. XANAX [Suspect]
     Dosage: UNK
  2. VIIBRYD [Suspect]
     Dosage: UNK
  3. METHADONE [Suspect]
     Dosage: UNK

REACTIONS (3)
  - Dizziness [Unknown]
  - Fall [Unknown]
  - Ankle fracture [Unknown]
